FAERS Safety Report 25537909 (Version 1)
Quarter: 2025Q3

REPORT INFORMATION
  Report Type: Spontaneous
  Country: US (occurrence: US)
  Receive Date: 20250710
  Receipt Date: 20250710
  Transmission Date: 20251020
  Serious: Yes (Other)
  Sender: SANOFI AVENTIS
  Company Number: US-SA-2025SA191753

PATIENT
  Age: 51 Year
  Sex: Male

DRUGS (2)
  1. REZUROCK [Suspect]
     Active Substance: BELUMOSUDIL
     Indication: Myelodysplastic syndrome with excess blasts
     Dosage: 200 MG, QD
     Route: 048
     Dates: start: 20230816
  2. REZUROCK [Suspect]
     Active Substance: BELUMOSUDIL
     Indication: Graft versus host disease

REACTIONS (6)
  - Bell^s palsy [Unknown]
  - Loss of personal independence in daily activities [Unknown]
  - Procedural pain [Unknown]
  - Depressed mood [Unknown]
  - Rotator cuff repair [Unknown]
  - Product use in unapproved indication [Unknown]

NARRATIVE: CASE EVENT DATE: 20230816
